FAERS Safety Report 20488708 (Version 1)
Quarter: 2022Q1

REPORT INFORMATION
  Report Type: Spontaneous
  Country: HR (occurrence: HR)
  Receive Date: 20220218
  Receipt Date: 20220218
  Transmission Date: 20220423
  Serious: Yes (Other)
  Sender: FDA-Public Use
  Company Number: HR-SUN PHARMACEUTICAL INDUSTRIES LTD-2022R1-326508

PATIENT
  Age: 51 Year
  Sex: Female

DRUGS (2)
  1. PREDNISONE [Suspect]
     Active Substance: PREDNISONE
     Indication: Multiple sclerosis relapse
     Dosage: UNK
     Route: 065
  2. AZATHIOPRINE [Suspect]
     Active Substance: AZATHIOPRINE
     Indication: Multiple sclerosis relapse
     Dosage: UNK
     Route: 065

REACTIONS (1)
  - Disease recurrence [Unknown]
